FAERS Safety Report 18042152 (Version 1)
Quarter: 2020Q3

REPORT INFORMATION
  Report Type: Spontaneous
  Country: CA (occurrence: CA)
  Receive Date: 20200720
  Receipt Date: 20200720
  Transmission Date: 20201103
  Serious: Yes (Death, Hospitalization, Other)
  Sender: FDA-Public Use
  Company Number: CA-AMGEN-CANSP2020114333

PATIENT

DRUGS (8)
  1. FILGRASTIM [Suspect]
     Active Substance: FILGRASTIM
     Indication: HAEMATOPOIETIC STEM CELL MOBILISATION
     Dosage: UNK, (10 PG/KG)
     Route: 058
  2. MELPHALAN. [Concomitant]
     Active Substance: MELPHALAN
     Dosage: 200 MILLIGRAM/SQ. METER
     Route: 042
  3. MELPHALAN. [Concomitant]
     Active Substance: MELPHALAN
     Dosage: 140 MILLIGRAM/SQ. METER
     Route: 042
  4. CYCLOPHOSPHAMIDE. [Concomitant]
     Active Substance: CYCLOPHOSPHAMIDE
     Indication: PLASMA CELL MYELOMA
     Dosage: 2.5 GRAM PER SQUARE METRE
     Route: 042
  5. BORTEZOMIB. [Concomitant]
     Active Substance: BORTEZOMIB
     Indication: PLASMA CELL MYELOMA
     Dosage: UNK, (1.3 OR 1.5 MILLIGRAM /METER SQUARE)
  6. PLERIXAFOR [Concomitant]
     Active Substance: PLERIXAFOR
     Indication: HAEMATOPOIETIC STEM CELL MOBILISATION
     Dosage: 0.24 MILLIGRAM/KILOGRAM
     Route: 058
  7. DEXAMETHASONE. [Concomitant]
     Active Substance: DEXAMETHASONE
     Indication: PLASMA CELL MYELOMA
     Dosage: 40 MILLIGRAM, (ONCE DAILY/ WEEKLY)
     Route: 048
  8. BUSULFAN. [Concomitant]
     Active Substance: BUSULFAN
     Dosage: 3.2 MILLIGRAM/KILOGRAM, QD
     Route: 042

REACTIONS (11)
  - Plasma cell myeloma [Fatal]
  - Febrile neutropenia [Unknown]
  - Gastrointestinal disorder [Unknown]
  - Bone pain [Unknown]
  - Acute kidney injury [Fatal]
  - Septic shock [Fatal]
  - Neuropathy peripheral [Unknown]
  - Infection [Unknown]
  - Hyponatraemia [Unknown]
  - Treatment failure [Unknown]
  - Pyrexia [Unknown]
